FAERS Safety Report 26198215 (Version 1)
Quarter: 2025Q4

REPORT INFORMATION
  Report Type: Spontaneous
  Country: EU (occurrence: EU)
  Receive Date: 20251224
  Receipt Date: 20251224
  Transmission Date: 20260117
  Serious: Yes (Hospitalization, Other)
  Sender: PFIZER
  Company Number: None

PATIENT
  Age: 57 Year
  Sex: Male
  Weight: 73.4 kg

DRUGS (3)
  1. RITUXIMAB [Suspect]
     Active Substance: RITUXIMAB
     Indication: Follicular lymphoma
     Dosage: 700 MG
     Route: 042
     Dates: start: 20251118, end: 20251118
  2. RITUXIMAB [Suspect]
     Active Substance: RITUXIMAB
     Dosage: 1400 MG
     Route: 058
     Dates: start: 20251125, end: 20251125
  3. RITUXIMAB [Suspect]
     Active Substance: RITUXIMAB
     Dosage: 700 MG
     Route: 042
     Dates: start: 20251202, end: 20251202

REACTIONS (3)
  - Dermo-hypodermitis [Recovering/Resolving]
  - Septic shock [Recovered/Resolved]
  - Injection site reaction [Recovered/Resolved]

NARRATIVE: CASE EVENT DATE: 20251125
